FAERS Safety Report 10447457 (Version 1)
Quarter: 2014Q3

REPORT INFORMATION
  Report Type: Spontaneous
  Country: US (occurrence: US)
  Receive Date: 20140911
  Receipt Date: 20140911
  Transmission Date: 20150326
  Serious: No
  Sender: FDA-Public Use
  Company Number: US-BEH-2014040048

PATIENT
  Age: 37 Year
  Sex: Male
  Weight: 113 kg

DRUGS (17)
  1. CENTRUM COMPLETE MULTIVITAMIN [Concomitant]
  2. AMBIEN [Concomitant]
     Active Substance: ZOLPIDEM TARTRATE
  3. HEPARIN [Concomitant]
     Active Substance: HEPARIN SODIUM
  4. LMX [Concomitant]
     Active Substance: LIDOCAINE
  5. GABAPENTIN. [Concomitant]
     Active Substance: GABAPENTIN
  6. ALBUTEROL. [Concomitant]
     Active Substance: ALBUTEROL
  7. SODIUM CHLORIDE. [Concomitant]
     Active Substance: SODIUM CHLORIDE
  8. LISINOPRIL. [Concomitant]
     Active Substance: LISINOPRIL
  9. EPIPEN [Concomitant]
     Active Substance: EPINEPHRINE
  10. TESTIM [Concomitant]
     Active Substance: TESTOSTERONE
  11. DIPHENHYDRAMINE [Concomitant]
     Active Substance: DIPHENHYDRAMINE
  12. CYANOCOBALAMIN. [Concomitant]
     Active Substance: CYANOCOBALAMIN
  13. VITAMIN D3 [Concomitant]
     Active Substance: CHOLECALCIFEROL
  14. SIMETHICONE [Concomitant]
     Active Substance: DIMETHICONE\SILICON DIOXIDE\SIMETHICONE
  15. HYCET [Concomitant]
     Active Substance: ACETAMINOPHEN\HYDROCODONE BITARTRATE
  16. ZEMAIRA [Suspect]
     Active Substance: .ALPHA.1-PROTEINASE INHIBITOR HUMAN
     Indication: ALPHA-1 ANTI-TRYPSIN DEFICIENCY
     Dosage: ???-???-2013; 9.2 ML/MIN.
     Route: 042
  17. OMEPRAZOLE. [Concomitant]
     Active Substance: OMEPRAZOLE

REACTIONS (2)
  - Device occlusion [Unknown]
  - Burning sensation [Unknown]

NARRATIVE: CASE EVENT DATE: 20140110
